FAERS Safety Report 4554880-X (Version None)
Quarter: 2004Q4

REPORT INFORMATION
  Report Type: 
  Country: None (occurrence: None)
  Receive Date: 20041222
  Receipt Date: 20040908
  Transmission Date: 20050328
  Serious: No
  Sender: FDA-Public Use
  Company Number: 208915

PATIENT
  Age: 70 Year
  Sex: Male
  Weight: 84.4 kg

DRUGS (9)
  1. AVASTIN [Suspect]
     Indication: COLON CANCER METASTATIC
     Dosage: 397 MG, Q2W, INTRAVENOUS
     Route: 042
     Dates: start: 20040330
  2. FLUOROURACIL [Concomitant]
  3. OXALIPLATIN (OXALIPLATIN) [Concomitant]
  4. LEUCOVORIN CALCIUM [Concomitant]
  5. EPOGEN [Concomitant]
  6. NEUPOGEN [Concomitant]
  7. ALOXI (PALONOSETRON) [Concomitant]
  8. DECADRON [Concomitant]
  9. ANZEMET [Concomitant]

REACTIONS (1)
  - DEEP VEIN THROMBOSIS [None]
